FAERS Safety Report 9364107 (Version 1)
Quarter: 2013Q2

REPORT INFORMATION
  Report Type: Spontaneous
  Country: SE (occurrence: None)
  Receive Date: 20130618
  Receipt Date: 20130618
  Transmission Date: 20140414
  Serious: Yes (Life-Threatening)
  Sender: FDA-Public Use
  Company Number: SYM-2013-04714

PATIENT
  Age: 91 Year
  Sex: Male

DRUGS (4)
  1. FLAGYL [Suspect]
     Indication: PRODUCT USED FOR UNKNOWN INDICATION
     Route: 048
  2. MINDIAB [Suspect]
     Indication: PRODUCT USED FOR UNKNOWN INDICATION
  3. KLACID [Suspect]
     Indication: PRODUCT USED FOR UNKNOWN INDICATION
  4. NEXIUM [Concomitant]

REACTIONS (1)
  - Hypoglycaemia [None]
